FAERS Safety Report 7517467-2 (Version None)
Quarter: 2011Q2

REPORT INFORMATION
  Report Type: 
  Country: None (occurrence: None)
  Receive Date: 20110601
  Receipt Date: 20110527
  Transmission Date: 20111010
  Serious: Yes (Other)
  Sender: FDA-Public Use
  Company Number: US-PFIZER INC-2011115504

PATIENT
  Sex: Female
  Weight: 64.853 kg

DRUGS (2)
  1. XANAX [Suspect]
     Indication: ANXIETY
     Dosage: 1 MG, AS NEEDED
     Route: 048
     Dates: start: 20101127, end: 20110301
  2. XANAX [Suspect]
     Dosage: 2 MG, 3X/DAY
     Dates: start: 20110301

REACTIONS (3)
  - MENSTRUATION IRREGULAR [None]
  - AMNESIA [None]
  - DECREASED APPETITE [None]
